FAERS Safety Report 21815775 (Version 1)
Quarter: 2023Q1

REPORT INFORMATION
  Report Type: Report from Study
  Country: US (occurrence: US)
  Receive Date: 20230104
  Receipt Date: 20230104
  Transmission Date: 20230417
  Serious: No
  Sender: FDA-Public Use
  Company Number: US-ABBVIE-4229074

PATIENT
  Sex: Female

DRUGS (1)
  1. HUMIRA [Suspect]
     Active Substance: ADALIMUMAB
     Indication: Rheumatoid arthritis
     Dosage: 40 MG
     Route: 058

REACTIONS (4)
  - Bronchitis [Unknown]
  - COVID-19 [Recovering/Resolving]
  - Upper respiratory tract infection [Recovering/Resolving]
  - Cough [Recovering/Resolving]

NARRATIVE: CASE EVENT DATE: 20220101
